FAERS Safety Report 7704250-8 (Version None)
Quarter: 2011Q3

REPORT INFORMATION
  Report Type: 
  Country: None (occurrence: None)
  Receive Date: 20110823
  Receipt Date: 20110727
  Transmission Date: 20111222
  Serious: Yes (Other)
  Sender: FDA-Public Use
  Company Number: US-ELI_LILLY_AND_COMPANY-US201106004775

PATIENT
  Sex: Female
  Weight: 85.4 kg

DRUGS (7)
  1. COMBIVENT [Concomitant]
  2. NIFEDIPINE [Concomitant]
     Dosage: 30 MG, QD
  3. TOPROL-XL [Concomitant]
     Dosage: 25 MG, QD
  4. BUPROPION HCL [Concomitant]
     Dosage: 150 MG, QD
  5. ASPIRIN [Concomitant]
     Dosage: 81 MG, QD
  6. SYMBICORT [Concomitant]
     Dosage: 2 DF, BID
  7. ADCIRCA [Suspect]
     Dosage: 40 MG, QD
     Dates: start: 20110613

REACTIONS (2)
  - FACE OEDEMA [None]
  - HYPOTENSION [None]
